FAERS Safety Report 12875600 (Version 2)
Quarter: 2016Q4

REPORT INFORMATION
  Report Type: Spontaneous
  Country: IT (occurrence: IT)
  Receive Date: 20161024
  Receipt Date: 20161228
  Transmission Date: 20170207
  Serious: Yes (Hospitalization, Other)
  Sender: FDA-Public Use
  Company Number: IT-BRISTOL-MYERS SQUIBB COMPANY-BMS-2016-084967

PATIENT
  Age: 83 Year
  Sex: Female

DRUGS (7)
  1. PANTOPRAZOLE [Concomitant]
     Active Substance: PANTOPRAZOLE SODIUM
     Indication: PRODUCT USED FOR UNKNOWN INDICATION
     Dosage: 20 MG, UNK
     Route: 048
     Dates: end: 20161005
  2. BISOPROLOL HEMIFUMARATE [Concomitant]
     Active Substance: BISOPROLOL FUMARATE
     Indication: HYPERTENSION
     Dosage: 1.25 MG, UNK
     Route: 048
     Dates: end: 20161005
  3. AMLODIPINE [Concomitant]
     Active Substance: AMLODIPINE BESYLATE
     Indication: HYPERTENSION
     Dosage: 2.5 MG, UNK
     Route: 048
     Dates: end: 20161005
  4. TALOFEN [Concomitant]
     Active Substance: PROMAZINE HYDROCHLORIDE
     Indication: HYPERTENSION
     Dosage: 1 DF, UNK
     Route: 048
     Dates: end: 20161005
  5. COUMADIN [Suspect]
     Active Substance: WARFARIN SODIUM
     Indication: ATRIAL FIBRILLATION
     Dosage: 1.25 MG, QD
     Route: 048
     Dates: end: 20160924
  6. LOSARTAN. [Concomitant]
     Active Substance: LOSARTAN
     Indication: HYPERTENSION
     Dosage: 50 MG, UNK
     Route: 048
     Dates: end: 20161005
  7. FLECAINIDE [Concomitant]
     Active Substance: FLECAINIDE
     Indication: ARRHYTHMIA
     Dosage: 100 MG, UNK
     Route: 030
     Dates: end: 20161005

REACTIONS (4)
  - International normalised ratio increased [Unknown]
  - Colitis [Unknown]
  - Accidental overdose [Recovered/Resolved]
  - Rectal haemorrhage [Recovered/Resolved]

NARRATIVE: CASE EVENT DATE: 20160924
